FAERS Safety Report 20816673 (Version 1)
Quarter: 2022Q2

REPORT INFORMATION
  Report Type: Report from Study
  Country: US (occurrence: US)
  Receive Date: 20220512
  Receipt Date: 20220512
  Transmission Date: 20220721
  Serious: Yes (Other)
  Sender: FDA-Public Use
  Company Number: US-BRISTOL-MYERS SQUIBB COMPANY-2022-037874

PATIENT
  Age: 68 Year
  Sex: Female
  Weight: 71.8 kg

DRUGS (21)
  1. REVLIMID [Suspect]
     Active Substance: LENALIDOMIDE
     Indication: Plasma cell myeloma
     Dosage: 10 MILLIGRAM
     Route: 048
     Dates: start: 20151007, end: 20161001
  2. REVLIMID [Suspect]
     Active Substance: LENALIDOMIDE
     Dosage: 5 MILLIGRAM
     Route: 048
     Dates: start: 20161010, end: 20170814
  3. REVLIMID [Suspect]
     Active Substance: LENALIDOMIDE
     Dosage: 5 MILLIGRAM
     Route: 048
     Dates: start: 20170815, end: 20180328
  4. REVLIMID [Suspect]
     Active Substance: LENALIDOMIDE
     Dosage: 25 MILLIGRAM
     Route: 048
     Dates: start: 20181203, end: 20190807
  5. REVLIMID [Suspect]
     Active Substance: LENALIDOMIDE
     Dosage: 25 MILLIGRAM
     Route: 048
     Dates: start: 20201202, end: 20210111
  6. POMALIDOMIDE [Suspect]
     Active Substance: POMALIDOMIDE
     Indication: Plasma cell myeloma
     Dosage: 3 MILLIGRAM
     Route: 048
     Dates: start: 20180409, end: 20180903
  7. BLENREP [Suspect]
     Active Substance: BELANTAMAB MAFODOTIN-BLMF
     Indication: Plasma cell myeloma
     Route: 042
     Dates: start: 20210210, end: 20211228
  8. DARZALEX [Concomitant]
     Active Substance: DARATUMUMAB
     Indication: Product used for unknown indication
     Dosage: 16 MILLIGRAM/KILOGRAM
     Route: 042
     Dates: start: 20181203, end: 20200318
  9. DARZALEX [Concomitant]
     Active Substance: DARATUMUMAB
     Dosage: 16 MILLIGRAM/KILOGRAM
     Route: 042
     Dates: start: 20200511, end: 20201111
  10. VELCADE [Concomitant]
     Active Substance: BORTEZOMIB
     Indication: Product used for unknown indication
     Dosage: 1.3 MICROGRAM/SQ. METER
     Route: 058
     Dates: start: 20141215, end: 20150401
  11. VELCADE [Concomitant]
     Active Substance: BORTEZOMIB
     Dosage: 1.5 MICROGRAM/SQ. METER
     Route: 058
     Dates: start: 20210114, end: 20210128
  12. ALKERAN [Concomitant]
     Active Substance: MELPHALAN
     Indication: Product used for unknown indication
     Dosage: FREQUENCY TEXT: NOT PROVIDED
     Route: 042
     Dates: start: 20150501, end: 20150501
  13. CYTOXAN [Concomitant]
     Active Substance: CYCLOPHOSPHAMIDE
     Indication: Product used for unknown indication
     Dosage: FREQUENCY TEXT: DAY 1,8,15,22 OF A 28 DY
     Route: 042
     Dates: start: 20141215, end: 20150401
  14. CYTOXAN [Concomitant]
     Active Substance: CYCLOPHOSPHAMIDE
     Dosage: 500 MILLIGRAM
     Route: 042
     Dates: start: 20210114, end: 20210128
  15. DECADRON [Concomitant]
     Active Substance: DEXAMETHASONE
     Indication: Product used for unknown indication
     Dosage: FREQUENCY TEXT: DAY 1,8,15,22 OF A 28 DY
     Route: 048
     Dates: start: 20141215, end: 20150401
  16. DECADRON [Concomitant]
     Active Substance: DEXAMETHASONE
     Dosage: 40 MILLIGRAM
     Route: 048
     Dates: start: 20180409, end: 20180903
  17. DECADRON [Concomitant]
     Active Substance: DEXAMETHASONE
     Dosage: 20 MILLIGRAM
     Route: 048
     Dates: start: 20181203, end: 20190807
  18. DECADRON [Concomitant]
     Active Substance: DEXAMETHASONE
     Dosage: 20 MILLIGRAM
     Route: 048
     Dates: start: 20201202, end: 20210111
  19. DECADRON [Concomitant]
     Active Substance: DEXAMETHASONE
     Dosage: 20 MILLIGRAM
     Route: 048
     Dates: start: 20210114, end: 20210128
  20. KYPROLIS [Concomitant]
     Active Substance: CARFILZOMIB
     Indication: Product used for unknown indication
     Dosage: FREQUENCY TEXT: DAYS 1,2,8,9,15,16?27 MILLIGRAM/SQ. METER
     Route: 042
     Dates: start: 20180409, end: 20180701
  21. SELINEXOR [Concomitant]
     Active Substance: SELINEXOR
     Indication: Product used for unknown indication
     Dosage: 60 MILLIGRAM
     Route: 048
     Dates: start: 20201202, end: 20210111

REACTIONS (1)
  - Adenocarcinoma [Recovered/Resolved]

NARRATIVE: CASE EVENT DATE: 20220113
